FAERS Safety Report 7712152-6 (Version None)
Quarter: 2011Q3

REPORT INFORMATION
  Report Type: 
  Country: None (occurrence: None)
  Receive Date: 20110822
  Receipt Date: 20110819
  Transmission Date: 20111222
  Serious: Yes (Other)
  Sender: FDA-Public Use
  Company Number: 2011SP037118

PATIENT
  Age: 57 Year
  Sex: Male
  Weight: 74.8 kg

DRUGS (3)
  1. PRAVASTATIN [Concomitant]
  2. MIRALAX [Suspect]
     Indication: CONSTIPATION
     Dosage: ONCE;PO
     Route: 048
     Dates: start: 20110804, end: 20110804
  3. CARVEDILOL [Concomitant]

REACTIONS (1)
  - ANAPHYLACTIC SHOCK [None]
